FAERS Safety Report 8650725 (Version 3)
Quarter: 2013Q2

REPORT INFORMATION
  Report Type: Spontaneous
  Country: FR (occurrence: FR)
  Receive Date: 20120705
  Receipt Date: 20130521
  Transmission Date: 20140414
  Serious: Yes (Hospitalization)
  Sender: FDA-Public Use
  Company Number: FR-GLAXOSMITHKLINE-B0811075A

PATIENT
  Age: 0 Year
  Sex: Female
  Weight: 2.7 kg

DRUGS (1)
  1. LAMICTAL [Suspect]
     Indication: PRODUCT USED FOR UNKNOWN INDICATION
     Dosage: 50MG PER DAY
     Route: 064
     Dates: end: 20120610

REACTIONS (5)
  - Hepatitis acute [Not Recovered/Not Resolved]
  - Jaundice neonatal [Not Recovered/Not Resolved]
  - Cholestasis [Not Recovered/Not Resolved]
  - Hepatocellular injury [Not Recovered/Not Resolved]
  - Foetal exposure during pregnancy [Unknown]
